FAERS Safety Report 8760833 (Version 1)
Quarter: 2012Q4

REPORT INFORMATION
  Report Type: 
  Country: BR (occurrence: BR)
  Receive Date: 20120829
  Receipt Date: 20120829
  Transmission Date: 20130627
  Serious: Yes (Other)
  Sender: FDA-Public Use
  Company Number: BR-ELI_LILLY_AND_COMPANY-BR201208008243

PATIENT
  Age: 49 Year
  Sex: Male
  Weight: 75 kg

DRUGS (5)
  1. HUMULIN N [Suspect]
     Indication: TYPE 1 DIABETES MELLITUS
     Dosage: UNK UNK, unknown
     Route: 058
     Dates: start: 2010
  2. HUMULIN N [Suspect]
     Dosage: 24 IU, each morning
     Route: 058
  3. HUMULIN N [Suspect]
     Dosage: 10 IU, other
     Route: 058
  4. HUMULIN N [Suspect]
     Dosage: 24 IU, each evening
     Route: 058
  5. HUMULIN R [Suspect]
     Dosage: UNK, unknown
     Route: 065
     Dates: end: 201207

REACTIONS (4)
  - Blood glucose fluctuation [Recovered/Resolved]
  - Blood glucose increased [Recovered/Resolved]
  - Headache [Recovered/Resolved]
  - Blood glucose decreased [Recovered/Resolved]
